FAERS Safety Report 24937342 (Version 1)
Quarter: 2025Q1

REPORT INFORMATION
  Report Type: Spontaneous
  Country: US (occurrence: None)
  Receive Date: 20250205
  Receipt Date: 20250205
  Transmission Date: 20250408
  Serious: Yes (Hospitalization)
  Sender: FDA-CTU
  Company Number: None

PATIENT
  Age: 2 Day
  Sex: Male
  Weight: 2.5 kg

DRUGS (1)
  1. ZONISAMIDE [Suspect]
     Active Substance: ZONISAMIDE
     Indication: Seizure
     Dosage: FREQUENCY : DAILY;?

REACTIONS (5)
  - Maternal exposure during breast feeding [None]
  - Sedation [None]
  - Irritability [None]
  - Poor feeding infant [None]
  - Hypoglycaemia [None]

NARRATIVE: CASE EVENT DATE: 20241104
